FAERS Safety Report 10076641 (Version 1)
Quarter: 2014Q2

REPORT INFORMATION
  Report Type: Spontaneous
  Country: US (occurrence: US)
  Receive Date: 20140414
  Receipt Date: 20140414
  Transmission Date: 20141212
  Serious: No
  Sender: FDA-Public Use
  Company Number: US-009507513-1404USA000462

PATIENT
  Sex: Female

DRUGS (3)
  1. CLARITIN REDITABS [Suspect]
     Indication: HYPERSENSITIVITY
     Dosage: 10 MG, ONCE
     Route: 048
     Dates: start: 20140315
  2. CLARITIN REDITABS [Suspect]
     Indication: PRURITUS
  3. CLARITIN REDITABS [Suspect]
     Indication: SNEEZING

REACTIONS (14)
  - Headache [Recovered/Resolved]
  - Tinnitus [Recovered/Resolved]
  - Palpitations [Recovered/Resolved]
  - Eye disorder [Recovered/Resolved]
  - Nausea [Recovered/Resolved]
  - Adverse drug reaction [Recovered/Resolved]
  - Vision blurred [Recovered/Resolved]
  - Tension [Recovered/Resolved]
  - Abdominal pain [Recovered/Resolved]
  - Diarrhoea [Recovered/Resolved]
  - Eye pain [Recovered/Resolved]
  - Insomnia [Recovered/Resolved]
  - Myalgia [Recovered/Resolved]
  - Arthralgia [Recovered/Resolved]
